FAERS Safety Report 10567160 (Version 2)
Quarter: 2014Q4

REPORT INFORMATION
  Report Type: Spontaneous
  Country: DZ (occurrence: DZ)
  Receive Date: 20141105
  Receipt Date: 20141203
  Transmission Date: 20150529
  Serious: Yes (Death, Other)
  Sender: FDA-Public Use
  Company Number: DZ-SA-2014SA149055

PATIENT
  Age: 65 Year

DRUGS (6)
  1. ADRIAMYCIN [Concomitant]
     Active Substance: DOXORUBICIN HYDROCHLORIDE
     Indication: METASTATIC NEOPLASM
     Route: 042
     Dates: start: 20140901, end: 20140901
  2. FLUOROURACIL. [Concomitant]
     Active Substance: FLUOROURACIL
  3. DOCETAXEL. [Suspect]
     Active Substance: DOCETAXEL
     Indication: METASTATIC NEOPLASM
     Route: 042
     Dates: start: 20141009
  4. CISPLATIN. [Concomitant]
     Active Substance: CISPLATIN
  5. SOLUPRED [Concomitant]
     Active Substance: PREDNISOLONE
     Indication: SKIN DISORDER
     Route: 048
     Dates: start: 201409, end: 201410
  6. DOCETAXEL. [Suspect]
     Active Substance: DOCETAXEL
     Indication: METASTATIC NEOPLASM
     Route: 042
     Dates: start: 20140901, end: 20141009

REACTIONS (5)
  - Skin toxicity [Fatal]
  - Leukopenia [Fatal]
  - Mucosal inflammation [Unknown]
  - Neutropenia [Fatal]
  - Asthenia [Unknown]
